FAERS Safety Report 10503792 (Version 1)
Quarter: 2014Q4

REPORT INFORMATION
  Report Type: Spontaneous
  Country: US (occurrence: None)
  Receive Date: 20141006
  Receipt Date: 20141006
  Transmission Date: 20150528
  Serious: Yes (Hospitalization)
  Sender: FDA-Public Use
  Company Number: US-H14001-14-00843

PATIENT
  Age: 30 Year
  Sex: Male

DRUGS (3)
  1. CLINDAMYCIN [Suspect]
     Active Substance: CLINDAMYCIN\CLINDAMYCIN PHOSPHATE
     Indication: JOINT INJURY
  2. NAPROXEN. [Suspect]
     Active Substance: NAPROXEN
     Indication: JOINT INJURY
  3. TUMS (TUMS /00193601/) (UNKNOWN) (CALCIUM CARBONATE, MAGNESIUM CARBONATE, MAGNESIUM TRISILICATE) [Concomitant]

REACTIONS (18)
  - Metabolic alkalosis [None]
  - Anaemia [None]
  - Constipation [None]
  - Mucosal dryness [None]
  - Hypovolaemia [None]
  - Decreased appetite [None]
  - Acute kidney injury [None]
  - Irritability [None]
  - Thirst [None]
  - Hypercalcaemia [None]
  - Vitamin D [None]
  - Nausea [None]
  - Dyspepsia [None]
  - Blood pressure increased [None]
  - Blood parathyroid hormone [None]
  - Milk-alkali syndrome [None]
  - Vomiting [None]
  - Plasma cell myeloma [None]
